FAERS Safety Report 21338501 (Version 1)
Quarter: 2022Q3

REPORT INFORMATION
  Report Type: Report from Study
  Country: US (occurrence: US)
  Receive Date: 20220915
  Receipt Date: 20220915
  Transmission Date: 20221026
  Serious: Yes (Hospitalization, Other)
  Sender: FDA-Public Use
  Company Number: US-BRISTOL-MYERS SQUIBB COMPANY-2022-104732

PATIENT
  Age: 68 Year
  Sex: Male

DRUGS (10)
  1. POMALIDOMIDE [Suspect]
     Active Substance: POMALIDOMIDE
     Indication: Plasma cell myeloma
     Dosage: OTHER SCHEDULE: 1 DAILY 21 OF 28 DAY
     Route: 048
     Dates: start: 20190207, end: 20190807
  2. POMALIDOMIDE [Suspect]
     Active Substance: POMALIDOMIDE
     Dosage: OTHER SCHEDULE: 1 DAILY 21 OF 28 DAYS
     Route: 048
     Dates: start: 20190207
  3. POMALIDOMIDE [Suspect]
     Active Substance: POMALIDOMIDE
     Route: 065
     Dates: start: 20190807
  4. VELCADE [Concomitant]
     Active Substance: BORTEZOMIB
     Indication: Product used for unknown indication
     Dosage: 2X WEEKLY, DAYS 1 AND 4 Q 7D, 1 WK OFF Q 14D
     Route: 058
     Dates: start: 20150309, end: 20150526
  5. CARFILZOMIB [Concomitant]
     Active Substance: CARFILZOMIB
     Indication: Product used for unknown indication
     Dosage: FREQUENCY: DAY 1,2,15,16
     Route: 065
     Dates: start: 20171030, end: 20190812
  6. CARFILZOMIB [Concomitant]
     Active Substance: CARFILZOMIB
     Dosage: OTHER SCHEDULE: D1,2,8,9,15,16 EVERY 28 DAYS
     Route: 042
     Dates: start: 20171030
  7. CARFILZOMIB [Concomitant]
     Active Substance: CARFILZOMIB
     Dosage: THER SCHEDULE: DAYS 1,2,8,9,15 AND 16 IN 28 DAYS
     Route: 042
     Dates: start: 20190207
  8. DECADRON [Concomitant]
     Active Substance: DEXAMETHASONE
     Indication: Product used for unknown indication
     Dosage: WEEKLY
     Route: 048
     Dates: start: 20150309, end: 20150526
  9. DECADRON [Concomitant]
     Active Substance: DEXAMETHASONE
     Dosage: WEEKLY
     Route: 048
     Dates: start: 20171030
  10. DECADRON [Concomitant]
     Active Substance: DEXAMETHASONE
     Dosage: 3 TABS EVERY THURSDAY, 2 TABS EVERY FRIDAY
     Route: 048
     Dates: start: 20190207, end: 20190807

REACTIONS (1)
  - Pulmonary sepsis [Unknown]

NARRATIVE: CASE EVENT DATE: 20190807
